FAERS Safety Report 7229589-4 (Version None)
Quarter: 2011Q1

REPORT INFORMATION
  Report Type: 
  Country: None (occurrence: None)
  Receive Date: 20110117
  Receipt Date: 20110107
  Transmission Date: 20110831
  Serious: Yes (Hospitalization, Other)
  Sender: FDA-Public Use
  Company Number: BR-MEDIMMUNE-MEDI-0012185

PATIENT
  Sex: Female
  Weight: 6.1 kg

DRUGS (4)
  1. SYNAGIS [Suspect]
     Route: 030
     Dates: start: 20100701
  2. PROTOVIT [Concomitant]
     Route: 048
     Dates: start: 20100401
  3. FERRIC HYDROXIDE POLYMALTOSE COMPLEX [Concomitant]
     Route: 048
     Dates: start: 20100601
  4. SODIUM ASCORBATE [Concomitant]
     Route: 048
     Dates: start: 20100601

REACTIONS (4)
  - PNEUMONIA [None]
  - RESPIRATORY FAILURE [None]
  - PHARYNGEAL INFLAMMATION [None]
  - CONDITION AGGRAVATED [None]
